FAERS Safety Report 4373953-8 (Version None)
Quarter: 2004Q2

REPORT INFORMATION
  Report Type: 
  Country: None (occurrence: None)
  Receive Date: 20040601
  Receipt Date: 20040310
  Transmission Date: 20050107
  Serious: No
  Sender: FDA-Public Use
  Company Number: MPS1-10193

PATIENT
  Age: 18 Year
  Sex: Male

DRUGS (4)
  1. ALDURAZYME [Suspect]
     Indication: MUCOPOLYSACCHARIDOSIS I
     Dosage: 0.58 MG/KG QWK IV
     Route: 042
     Dates: start: 20031219
  2. ALDURAZYME [Suspect]
     Indication: MUCOPOLYSACCHARIDOSIS IH/S
     Dosage: 0.58 MG/KG QWK IV
     Route: 042
     Dates: start: 20031219
  3. TYLENOL [Concomitant]
  4. BENADRYL [Concomitant]

REACTIONS (2)
  - PRURITUS [None]
  - URTICARIA [None]
